FAERS Safety Report 9283407 (Version 1)
Quarter: 2013Q2

REPORT INFORMATION
  Report Type: Spontaneous
  Country: US (occurrence: US)
  Receive Date: 20130510
  Receipt Date: 20130510
  Transmission Date: 20140414
  Serious: No
  Sender: FDA-Public Use
  Company Number: US-GLAXOSMITHKLINE-A1006098A

PATIENT
  Age: 59 Year
  Sex: Female

DRUGS (1)
  1. TYKERB [Suspect]
     Indication: NEOPLASM MALIGNANT
     Dosage: 1000MG PER DAY
     Route: 048
     Dates: start: 20120313

REACTIONS (4)
  - Rash [Not Recovered/Not Resolved]
  - Rash pruritic [Not Recovered/Not Resolved]
  - Onychoclasis [Not Recovered/Not Resolved]
  - Dry skin [Not Recovered/Not Resolved]
